FAERS Safety Report 4292552-X (Version None)
Quarter: 2004Q1

REPORT INFORMATION
  Report Type: 
  Country: None (occurrence: None)
  Receive Date: 20040211
  Receipt Date: 20040211
  Transmission Date: 20041129
  Serious: Yes (Life-Threatening, Hospitalization, Disabling)
  Sender: FDA-Public Use
  Company Number: None

PATIENT
  Age: 75 Year
  Sex: Female
  Weight: 82.9 kg

DRUGS (6)
  1. LOVENOX [Suspect]
     Indication: KNEE ARTHROPLASTY
     Dosage: 30 MG Q12 H SQ
     Route: 058
  2. ASPIRIN [Suspect]
     Dosage: 81 M ONCE DAILY ORAL
     Route: 048
  3. VIOXX [Concomitant]
  4. PERCOCET [Concomitant]
  5. ZOCOR [Concomitant]
  6. FERROUS SULFATE TAB [Concomitant]

REACTIONS (5)
  - CEREBRAL HAEMORRHAGE [None]
  - FALL [None]
  - HEMIPLEGIA [None]
  - LETHARGY [None]
  - NERVOUS SYSTEM DISORDER [None]
